FAERS Safety Report 8985139 (Version 3)
Quarter: 2013Q1

REPORT INFORMATION
  Report Type: Spontaneous
  Country: BR (occurrence: BR)
  Receive Date: 20121226
  Receipt Date: 20130227
  Transmission Date: 20140127
  Serious: Yes (Hospitalization, Other)
  Sender: FDA-Public Use
  Company Number: PHHY2012BR118851

PATIENT
  Sex: Female

DRUGS (3)
  1. DIOVAN [Suspect]
     Indication: HYPERTENSION
     Dosage: 160 MG, UNK
  2. DIOVAN [Suspect]
     Dosage: 80 MG, IN THE MORNING
     Dates: start: 201212
  3. DIOVAN [Suspect]
     Dosage: 2 DF (80MG), DAILY

REACTIONS (1)
  - Urinary tract infection [Recovering/Resolving]
